FAERS Safety Report 4277251-2 (Version None)
Quarter: 2004Q1

REPORT INFORMATION
  Report Type: 
  Country: None (occurrence: None)
  Receive Date: 20040120
  Receipt Date: 20040109
  Transmission Date: 20041129
  Serious: Yes (Hospitalization)
  Sender: FDA-Public Use
  Company Number: US063101

PATIENT
  Age: 43 Year
  Sex: Female

DRUGS (4)
  1. NEULASTA [Suspect]
     Indication: CHEMOTHERAPY
  2. NEUPOGEN [Suspect]
     Indication: CHEMOTHERAPY
  3. ETOPOSIDE [Concomitant]
  4. PACLITAXEL [Concomitant]

REACTIONS (2)
  - PHLEBITIS [None]
  - PYREXIA [None]
